FAERS Safety Report 6029012-1 (Version None)
Quarter: 2008Q4

REPORT INFORMATION
  Report Type: 
  Country: None (occurrence: None)
  Receive Date: 20081230
  Receipt Date: 20081219
  Transmission Date: 20090506
  Serious: Yes (Life-Threatening)
  Sender: FDA-Public Use
  Company Number: 2008-188697-NL

PATIENT
  Age: 54 Year
  Sex: Male

DRUGS (2)
  1. VECURONIUM BROMIDE [Suspect]
     Indication: HYPOTONIA
     Dosage: INTRAVENOUS (NOS)
     Route: 042
     Dates: start: 20071213, end: 20071213
  2. PROPOFOL [Suspect]
     Indication: INDUCTION OF ANAESTHESIA
     Dosage: INTRAVENOUS (NOS)
     Route: 042
     Dates: start: 20071213, end: 20071213

REACTIONS (2)
  - AIRWAY COMPLICATION OF ANAESTHESIA [None]
  - HAEMORRHAGE [None]
